FAERS Safety Report 13713855 (Version 2)
Quarter: 2017Q3

REPORT INFORMATION
  Report Type: Spontaneous
  Country: BR (occurrence: BR)
  Receive Date: 20170704
  Receipt Date: 20170713
  Transmission Date: 20171127
  Serious: Yes (Death, Hospitalization, Other)
  Sender: FDA-Public Use
  Company Number: BR-BRISTOL-MYERS SQUIBB COMPANY-BMS-2017-057151

PATIENT
  Age: 54 Year
  Sex: Female

DRUGS (1)
  1. NIVOLUMAB [Suspect]
     Active Substance: NIVOLUMAB
     Indication: LUNG NEOPLASM MALIGNANT
     Dosage: NOT PROVIDED
     Route: 065

REACTIONS (9)
  - Vasculitis [Unknown]
  - Infection [Unknown]
  - Pancytopenia [Unknown]
  - Platelet transfusion [Unknown]
  - Thrombocytopenia [Unknown]
  - Pyrexia [Unknown]
  - Skin infection [Fatal]
  - Haematochezia [Unknown]
  - Rash [Unknown]
